FAERS Safety Report 9618698 (Version 3)
Quarter: 2013Q4

REPORT INFORMATION
  Report Type: Spontaneous
  Country: US (occurrence: US)
  Receive Date: 20131014
  Receipt Date: 20131204
  Transmission Date: 20140711
  Serious: Yes (Other)
  Sender: FDA-Public Use
  Company Number: US-ELI_LILLY_AND_COMPANY-US201310001596

PATIENT
  Age: 13 Year
  Sex: Male
  Weight: 45.35 kg

DRUGS (2)
  1. STRATTERA [Suspect]
     Indication: PRODUCT USED FOR UNKNOWN INDICATION
     Dosage: 1 DF, UNKNOWN
     Route: 065
     Dates: end: 20130925
  2. STRATTERA [Suspect]
     Dosage: 60 MG, QD
     Route: 065
     Dates: start: 20130925, end: 20130930

REACTIONS (3)
  - Lymphadenitis [Recovered/Resolved]
  - Feeling abnormal [Recovered/Resolved]
  - Flat affect [Recovered/Resolved]
